FAERS Safety Report 7643798-1 (Version None)
Quarter: 2011Q3

REPORT INFORMATION
  Report Type: 
  Country: None (occurrence: None)
  Receive Date: 20110729
  Receipt Date: 20110721
  Transmission Date: 20111222
  Serious: Yes (Hospitalization)
  Sender: FDA-Public Use
  Company Number: IE-SHIRE-ALL1-2011-02416

PATIENT
  Sex: Female

DRUGS (1)
  1. ANAGRELIDE HYDROCHLORIDE [Suspect]
     Indication: PRODUCT USED FOR UNKNOWN INDICATION
     Dosage: UNK MG, UNKNOWN
     Route: 048

REACTIONS (1)
  - PULMONARY OEDEMA [None]
